FAERS Safety Report 7333239 (Version 5)
Quarter: 2022Q4

REPORT INFORMATION
  Report Type: Report from Study
  Country: US (occurrence: None)
  Receive Date: 20100326
  Receipt Date: 20221108
  Transmission Date: 20230113
  Serious: Yes (Death, Life-Threatening)
  Sender: FDA-Public Use
  Company Number: US-ROCHE-693181

PATIENT
  Age: 76 Year
  Sex: Female
  Weight: 103 kg

DRUGS (3)
  1. PACLITAXEL [Suspect]
     Active Substance: PACLITAXEL
     Indication: Ovarian epithelial cancer
     Dosage: FREQUENCY OVER 3 HOURS ON DAY 1 OF 21 DAYS CYCLE TOTAL DOSE 350 MG
     Route: 042
     Dates: start: 20090818, end: 20090818
  2. CARBOPLATIN [Suspect]
     Active Substance: CARBOPLATIN
     Indication: Ovarian epithelial cancer
     Dosage: DOSE 5 AUC OVER 30 MINUTES ON DAY 1 OF 21 DAYS CYCLE TOTAL DOSE 391 MG
     Route: 042
     Dates: start: 20090818, end: 20090818
  3. BEVACIZUMAB [Suspect]
     Active Substance: BEVACIZUMAB
     Indication: Ovarian epithelial cancer
     Dosage: FREQUENCY: OVER 30-90 MINUTES, ON DAY 1 OF 21 DAYS CYCLE, TOTAL DOSE: 1545 MG
     Route: 042
     Dates: start: 20090818, end: 20090818

REACTIONS (2)
  - Death [Fatal]
  - Atrial fibrillation [Recovered/Resolved]

NARRATIVE: CASE EVENT DATE: 20090904
